FAERS Safety Report 13456512 (Version 2)
Quarter: 2017Q2

REPORT INFORMATION
  Report Type: Not Available
  Country: None (occurrence: US)
  Receive Date: 20170418
  Receipt Date: 20170515
  Transmission Date: 20170830
  Serious: No
  Sender: FDA-Public Use
  Company Number: US-AKORN-53222

PATIENT
  Sex: Male

DRUGS (1)
  1. TIMOLOL MALEATE 0.5 % OPHTHALMIC SOLUTION [Suspect]
     Active Substance: TIMOLOL MALEATE

REACTIONS (2)
  - Eye irritation [Unknown]
  - Vision blurred [Unknown]
